FAERS Safety Report 15869774 (Version 2)
Quarter: 2019Q1

REPORT INFORMATION
  Report Type: Spontaneous
  Country: US (occurrence: US)
  Receive Date: 20190125
  Receipt Date: 20190201
  Transmission Date: 20190417
  Serious: No
  Sender: FDA-Public Use
  Company Number: US-ALLERGAN-1902690US

PATIENT
  Age: 62 Year
  Sex: Female

DRUGS (1)
  1. LINZESS [Suspect]
     Active Substance: LINACLOTIDE
     Indication: CONSTIPATION
     Dosage: 290 ?G, QD ON AN EMPTY STOMACH
     Route: 048
     Dates: start: 2016, end: 201812

REACTIONS (4)
  - Product dose omission [Unknown]
  - Adhesion [Unknown]
  - Off label use [Unknown]
  - Constipation [Not Recovered/Not Resolved]

NARRATIVE: CASE EVENT DATE: 201812
